FAERS Safety Report 7048765-7 (Version None)
Quarter: 2010Q4

REPORT INFORMATION
  Report Type: 
  Country: None (occurrence: None)
  Receive Date: 20101018
  Receipt Date: 20101012
  Transmission Date: 20110411
  Serious: No
  Sender: FDA-Public Use
  Company Number: US-BIOGENIDEC-2010BI035260

PATIENT
  Sex: Female

DRUGS (2)
  1. AVONEX [Suspect]
     Indication: MULTIPLE SCLEROSIS
     Route: 030
     Dates: start: 20020501, end: 20030101
  2. AVONEX [Suspect]
     Route: 030
     Dates: start: 20030101

REACTIONS (11)
  - ANXIETY [None]
  - BRONCHITIS [None]
  - COUGH [None]
  - DEPRESSION [None]
  - FEELING HOT [None]
  - INCREASED UPPER AIRWAY SECRETION [None]
  - INJECTION SITE ATROPHY [None]
  - INJECTION SITE HAEMATOMA [None]
  - INSOMNIA [None]
  - PREMENSTRUAL SYNDROME [None]
  - RHINITIS [None]
